FAERS Safety Report 10041486 (Version 2)
Quarter: 2014Q2

REPORT INFORMATION
  Report Type: Report from Study
  Country: JP (occurrence: JP)
  Receive Date: 20140327
  Receipt Date: 20140409
  Transmission Date: 20141212
  Serious: Yes (Death)
  Sender: FDA-Public Use
  Company Number: JP-AMGEN-JPNCT2014022039

PATIENT
  Age: 70 Year
  Sex: Female
  Weight: 62 kg

DRUGS (21)
  1. DENOSUMAB [Suspect]
     Indication: METASTASES TO BONE
     Dosage: 120 MG, UNK
     Route: 058
     Dates: start: 20130423, end: 20131022
  2. PEMETREXED [Concomitant]
     Dosage: UNK
     Route: 065
     Dates: start: 20130611, end: 20131023
  3. ZOMETA [Concomitant]
     Dosage: 4 MG, QD
     Route: 042
     Dates: start: 20110328, end: 20130312
  4. CALCICHEW [Concomitant]
     Dosage: 1 DF, QD
     Route: 048
     Dates: start: 20130423, end: 20130610
  5. DENOTAS [Concomitant]
     Dosage: 2 DF, QD
     Route: 048
     Dates: start: 20130611, end: 20131023
  6. CARBOPLATIN [Concomitant]
     Dosage: UNK
     Route: 065
     Dates: start: 20061012
  7. PACLITAXEL [Concomitant]
     Dosage: UNK
     Route: 065
     Dates: start: 20061012
  8. IRESSA [Concomitant]
     Dosage: UNK
     Route: 065
     Dates: start: 20080805, end: 20100216
  9. AFATINIB [Concomitant]
     Dosage: UNK
     Route: 065
     Dates: start: 201003, end: 20110323
  10. AMRUBICIN [Concomitant]
     Dosage: UNK
     Route: 065
     Dates: start: 20110530, end: 20110728
  11. TS-1 [Concomitant]
     Dosage: UNK
     Route: 065
     Dates: start: 20110922, end: 20120320
  12. BEVACIZUMAB [Concomitant]
     Dosage: UNK
     Route: 065
     Dates: start: 20110922, end: 20131023
  13. TARCEVA [Concomitant]
     Dosage: UNK
     Route: 065
     Dates: start: 20120914, end: 20130528
  14. OXYCONTIN [Concomitant]
     Dosage: 10 MG, QD
     Route: 048
     Dates: start: 20120806, end: 20131023
  15. TAKEPRON [Concomitant]
     Dosage: 15 MG, QD
     Route: 048
     Dates: end: 20121023
  16. LIPITOR [Concomitant]
     Dosage: 10 MG, QD
     Route: 048
     Dates: start: 20120508, end: 20131023
  17. CELECOX [Concomitant]
     Dosage: 200 MG, QD
     Route: 048
     Dates: start: 20120621, end: 20131023
  18. OLMETEC [Concomitant]
     Dosage: 20 MG, QD
     Route: 048
     Dates: start: 20121207, end: 20131023
  19. AMITIZA [Concomitant]
     Dosage: 48 MUG, QD
     Route: 048
     Dates: start: 20130219, end: 20131023
  20. YODEL-S [Concomitant]
     Dosage: 160 MG, QD
     Route: 048
     Dates: start: 20120927, end: 20131023
  21. PANVITAN                           /07504101/ [Concomitant]
     Dosage: 1 G, QD
     Route: 048
     Dates: start: 20130514, end: 20131023

REACTIONS (3)
  - Drowning [Fatal]
  - Liver disorder [Not Recovered/Not Resolved]
  - Blood creatinine increased [Not Recovered/Not Resolved]
